FAERS Safety Report 10185699 (Version 1)
Quarter: 2014Q2

REPORT INFORMATION
  Report Type: Spontaneous
  Country: DK (occurrence: DK)
  Receive Date: 20140521
  Receipt Date: 20140521
  Transmission Date: 20141212
  Serious: Yes (Hospitalization)
  Sender: FDA-Public Use
  Company Number: DK-WATSON-2014-10086

PATIENT
  Age: 41 Year
  Sex: Male
  Weight: 78 kg

DRUGS (5)
  1. CIPROFLOXACIN ACTAVIS [Suspect]
     Indication: GASTRITIS
     Dosage: 500 MG, BID
     Route: 048
     Dates: start: 20131125
  2. METRONIDAZOL ACTAVIS [Suspect]
     Indication: GASTRITIS
     Dosage: 500 MG, BID
     Route: 048
     Dates: start: 20131125
  3. ASACOL [Suspect]
     Indication: COLITIS ULCERATIVE
     Dosage: 2.4 G, BID
     Route: 048
     Dates: start: 20130905, end: 20131204
  4. PANCILLIN                          /00001801/ [Suspect]
     Indication: GASTRITIS
     Dosage: UNK - CONCENTRATION: 1 MILL. IE.
     Route: 048
     Dates: start: 20131112
  5. ROXITHROMYCIN ORIFARM [Suspect]
     Indication: GASTRITIS
     Dosage: UNK
     Route: 048
     Dates: start: 20131118

REACTIONS (3)
  - Diarrhoea [Recovered/Resolved]
  - Melaena [Recovered/Resolved]
  - Abdominal pain upper [Recovered/Resolved]
